FAERS Safety Report 9546788 (Version 2)
Quarter: 2013Q4

REPORT INFORMATION
  Report Type: Spontaneous
  Country: US (occurrence: US)
  Receive Date: 20130924
  Receipt Date: 20131119
  Transmission Date: 20140711
  Serious: No
  Sender: FDA-Public Use
  Company Number: US-B.I. PHARMACEUTICALS,INC./RIDGEFIELD-2013-BI-28599BP

PATIENT
  Age: 78 Year
  Sex: Female
  Weight: 67 kg

DRUGS (4)
  1. SPIRIVA [Suspect]
     Indication: CHRONIC OBSTRUCTIVE PULMONARY DISEASE
     Dosage: 18 MCG
     Route: 055
     Dates: start: 2009
  2. FLUTICASONE [Concomitant]
     Dosage: STRENGTH: 1 SPRAY; DAILY DOSE: 1 SPRAY
     Route: 055
  3. OXYCODONE [Concomitant]
     Indication: BACK PAIN
     Dosage: STRENGTH: 5-325MG
     Route: 048
  4. QVAR [Concomitant]
     Dosage: FORMULATION: INHALATION SPRAY, STRENGTH: 1 SPRAY; DAILY DOSE: 2 SPRAYS
     Route: 045

REACTIONS (3)
  - Gait disturbance [Not Recovered/Not Resolved]
  - Product quality issue [Recovered/Resolved]
  - Product quality issue [Recovered/Resolved]
